FAERS Safety Report 14019763 (Version 1)
Quarter: 2017Q3

REPORT INFORMATION
  Report Type: Spontaneous
  Country: BR (occurrence: BR)
  Receive Date: 20170928
  Receipt Date: 20170928
  Transmission Date: 20171128
  Serious: Yes (Other)
  Sender: FDA-Public Use
  Company Number: BR-PFIZER INC-2017412717

PATIENT
  Age: 81 Year
  Sex: Male

DRUGS (1)
  1. LORAX [Suspect]
     Active Substance: LORAZEPAM
     Dosage: TWO TABLETS AT NIGHT OF LORAX, 2 MG
     Dates: start: 1992

REACTIONS (3)
  - Condition aggravated [Unknown]
  - Gait disturbance [Not Recovered/Not Resolved]
  - Cardiovascular disorder [Unknown]

NARRATIVE: CASE EVENT DATE: 2012
